FAERS Safety Report 14133240 (Version 2)
Quarter: 2017Q4

REPORT INFORMATION
  Report Type: Spontaneous
  Country: JP (occurrence: JP)
  Receive Date: 20171027
  Receipt Date: 20171205
  Transmission Date: 20180321
  Serious: Yes (Hospitalization, Other)
  Sender: FDA-Public Use
  Company Number: JP-APOTEX-2017AP020383

PATIENT
  Age: 75 Year
  Sex: Female

DRUGS (3)
  1. BAYASPIRIN [Concomitant]
     Active Substance: ASPIRIN
     Dosage: UNK, QOD
     Route: 065
     Dates: end: 201710
  2. BAYASPIRIN [Concomitant]
     Active Substance: ASPIRIN
     Indication: PRODUCT USED FOR UNKNOWN INDICATION
     Dosage: UNK, QOD
     Route: 065
  3. PAROXETINE HYDROCHLORIDE TABLET [Suspect]
     Active Substance: PAROXETINE HYDROCHLORIDE
     Indication: PRODUCT USED FOR UNKNOWN INDICATION
     Dosage: UNK
     Route: 048
     Dates: end: 201710

REACTIONS (6)
  - Internal haemorrhage [Unknown]
  - Vomiting [Unknown]
  - Haematemesis [Not Recovered/Not Resolved]
  - Nausea [Unknown]
  - Gastrointestinal haemorrhage [Not Recovered/Not Resolved]
  - Cerebral infarction [Unknown]
